FAERS Safety Report 8483595-0 (Version None)
Quarter: 2012Q3

REPORT INFORMATION
  Report Type: 
  Country: None (occurrence: None)
  Receive Date: 20120702
  Receipt Date: 20120625
  Transmission Date: 20120928
  Serious: Yes (Other)
  Sender: FDA-Public Use
  Company Number: CO-MERCK-1206USA05467

PATIENT
  Age: 62 Year
  Sex: Male

DRUGS (3)
  1. AMIODARONA [Concomitant]
     Route: 048
  2. VERNAKALANT HYDROCHLORIDE [Suspect]
     Indication: ATRIAL FIBRILLATION
     Route: 042
     Dates: start: 20120622, end: 20120622
  3. AMIODARONA [Concomitant]
     Route: 042

REACTIONS (5)
  - TACHYCARDIA [None]
  - OVERDOSE [None]
  - HYPOTENSION [None]
  - ATRIOVENTRICULAR BLOCK COMPLETE [None]
  - WRONG TECHNIQUE IN DRUG USAGE PROCESS [None]
